FAERS Safety Report 12646939 (Version 1)
Quarter: 2016Q3

REPORT INFORMATION
  Report Type: Spontaneous
  Country: US (occurrence: None)
  Receive Date: 20160811
  Receipt Date: 20160811
  Transmission Date: 20161109
  Serious: Yes (Hospitalization)
  Sender: FDA-Public Use
  Company Number: None

PATIENT
  Age: 28 Year
  Sex: Female
  Weight: 72.58 kg

DRUGS (1)
  1. MIRENA [Suspect]
     Active Substance: LEVONORGESTREL

REACTIONS (5)
  - Haemorrhage [None]
  - Ectopic pregnancy with contraceptive device [None]
  - Ectopic pregnancy termination [None]
  - Muscle spasms [None]
  - Exposure during pregnancy [None]

NARRATIVE: CASE EVENT DATE: 20160805
